FAERS Safety Report 12231797 (Version 1)
Quarter: 2016Q2

REPORT INFORMATION
  Report Type: Spontaneous
  Country: NO (occurrence: NO)
  Receive Date: 20160401
  Receipt Date: 20160401
  Transmission Date: 20160815
  Serious: Yes (Life-Threatening, Disabling)
  Sender: FDA-Public Use
  Company Number: NO-BAXTER-2012BAX006691

PATIENT
  Age: 61 Year
  Sex: Male

DRUGS (2)
  1. SUPRANE [Suspect]
     Active Substance: DESFLURANE
     Indication: PROSTATIC OPERATION
     Route: 065
     Dates: start: 20120515
  2. SUPRANE [Suspect]
     Active Substance: DESFLURANE
     Indication: GENERAL ANAESTHESIA

REACTIONS (8)
  - Memory impairment [Unknown]
  - Tic [Unknown]
  - Hyperthermia malignant [Recovered/Resolved]
  - Fatigue [Unknown]
  - Cognitive disorder [Unknown]
  - Dizziness [Unknown]
  - Vision blurred [Unknown]
  - Headache [Unknown]

NARRATIVE: CASE EVENT DATE: 20120515
